FAERS Safety Report 19710845 (Version 1)
Quarter: 2021Q3

REPORT INFORMATION
  Report Type: Spontaneous
  Country: BR (occurrence: BR)
  Receive Date: 20210816
  Receipt Date: 20210816
  Transmission Date: 20211014
  Serious: Yes (Disabling)
  Sender: FDA-Public Use
  Company Number: BR-ASTRAZENECA-2021A677677

PATIENT
  Age: 83 Year
  Sex: Male

DRUGS (1)
  1. DAXAS [Suspect]
     Active Substance: ROFLUMILAST
     Indication: CHRONIC OBSTRUCTIVE PULMONARY DISEASE
     Dosage: ONCE DAILY, EVERY MORNING
     Route: 048
     Dates: start: 202105

REACTIONS (3)
  - Fatigue [Not Recovered/Not Resolved]
  - Blindness [Not Recovered/Not Resolved]
  - Insomnia [Not Recovered/Not Resolved]

NARRATIVE: CASE EVENT DATE: 202106
